FAERS Safety Report 4309212-9 (Version None)
Quarter: 2004Q1

REPORT INFORMATION
  Report Type: 
  Country: None (occurrence: None)
  Receive Date: 20040301
  Receipt Date: 20040215
  Transmission Date: 20041129
  Serious: Yes (Life-Threatening, Hospitalization)
  Sender: FDA-Public Use
  Company Number: DK-JNJFOC-20040201553

PATIENT
  Age: 56 Year
  Sex: Male
  Weight: 85 kg

DRUGS (3)
  1. TOPAMAX [Suspect]
     Indication: ALCOHOLISM
     Dosage: 50 MG, IN 1 DAY, ORAL; 450 MG, IN 1 DAY, ORAL
     Route: 048
     Dates: end: 20031211
  2. TOPAMAX [Suspect]
     Indication: ALCOHOLISM
     Dosage: 50 MG, IN 1 DAY, ORAL; 450 MG, IN 1 DAY, ORAL
     Route: 048
     Dates: start: 20031014
  3. ANTABUS (UNKNOWN) DISULFIRAM [Concomitant]

REACTIONS (9)
  - ALANINE AMINOTRANSFERASE DECREASED [None]
  - ALCOHOLISM [None]
  - ANOREXIA [None]
  - CHOLELITHIASIS [None]
  - HYPERTENSION [None]
  - NEUROPATHY [None]
  - SCHIZOPHRENIA, PARANOID TYPE [None]
  - SOCIAL AVOIDANT BEHAVIOUR [None]
  - WEIGHT DECREASED [None]
